FAERS Safety Report 22090924 (Version 1)
Quarter: 2023Q1

REPORT INFORMATION
  Report Type: Spontaneous
  Country: AU (occurrence: AU)
  Receive Date: 20230314
  Receipt Date: 20230314
  Transmission Date: 20230418
  Serious: Yes (Hospitalization)
  Sender: FDA-Public Use
  Company Number: AU-STRIDES ARCOLAB LIMITED-2023SP003666

PATIENT
  Age: 72 Year
  Sex: Female

DRUGS (13)
  1. OXYCODONE [Suspect]
     Active Substance: OXYCODONE
     Indication: Analgesic therapy
     Dosage: 20 MILLIGRAM, BID (SUSTAINED RELEASE 20MG TWICE DAILY 4 DAYS )
     Route: 065
     Dates: start: 2021, end: 2021
  2. OXYCODONE [Suspect]
     Active Substance: OXYCODONE
     Dosage: 5 MILLIGRAM, EVERY 4 HRS (IMMEDIATE RELEASE)
     Route: 065
     Dates: start: 2021, end: 2021
  3. OXYCODONE [Suspect]
     Active Substance: OXYCODONE
     Dosage: 5 MILLIGRAM, EVERY 4 HRS (IMMEDIATE RELEASE )(PATCH)
     Route: 065
     Dates: start: 2021, end: 2021
  4. TAPENTADOL [Suspect]
     Active Substance: TAPENTADOL
     Indication: Analgesic therapy
     Dosage: 100 MILLIGRAM, BID (DURING THE PREVIOUS TWO WEEKS)
     Route: 065
     Dates: start: 2021, end: 2021
  5. FENTANYL [Suspect]
     Active Substance: FENTANYL
     Indication: Analgesic therapy
     Dosage: UNK (PATCH)
     Route: 065
     Dates: start: 2021
  6. FENTANYL [Suspect]
     Active Substance: FENTANYL
     Dosage: 12 MICROGRAM PER HOUR
     Route: 065
     Dates: start: 2021
  7. FENTANYL [Suspect]
     Active Substance: FENTANYL
     Dosage: 100 MICROGRAM, EVERY 2 HRS
     Route: 060
     Dates: start: 2021
  8. FENTANYL [Suspect]
     Active Substance: FENTANYL
     Dosage: 25 MICROGRAM PER HOUR
     Route: 065
     Dates: start: 2021
  9. FENTANYL [Suspect]
     Active Substance: FENTANYL
     Dosage: 200 MICROGRAM
     Route: 060
     Dates: start: 2021
  10. APIXABAN [Concomitant]
     Active Substance: APIXABAN
     Indication: Atrial fibrillation
     Dosage: UNK
     Route: 065
     Dates: start: 2021
  11. SODIUM THIOSULFATE [Concomitant]
     Active Substance: SODIUM THIOSULFATE
     Indication: Calciphylaxis
     Dosage: UNK
     Route: 042
     Dates: start: 2021
  12. PREGABALIN [Concomitant]
     Active Substance: PREGABALIN
     Indication: Analgesic therapy
     Dosage: 75 MILLIGRAM (THRICE WEEKLY POST HAEMODIALYSIS )
     Route: 065
     Dates: start: 2021
  13. WARFARIN [Concomitant]
     Active Substance: WARFARIN
     Indication: Atrial fibrillation
     Dosage: UNK
     Route: 065

REACTIONS (4)
  - Neurotoxicity [Recovered/Resolved]
  - Myoclonus [Unknown]
  - Somnolence [Recovered/Resolved]
  - Confusional state [Recovered/Resolved]

NARRATIVE: CASE EVENT DATE: 20210101
